FAERS Safety Report 18098361 (Version 5)
Quarter: 2021Q1

REPORT INFORMATION
  Report Type: Spontaneous
  Country: US (occurrence: US)
  Receive Date: 20200731
  Receipt Date: 20210319
  Transmission Date: 20210419
  Serious: Yes (Other)
  Sender: FDA-Public Use
  Company Number: US-PFIZER INC-2020243953

PATIENT
  Age: 55 Year
  Sex: Female

DRUGS (2)
  1. XELJANZ XR [Suspect]
     Active Substance: TOFACITINIB CITRATE
     Indication: OSTEOARTHRITIS
  2. XELJANZ XR [Suspect]
     Active Substance: TOFACITINIB CITRATE
     Indication: RHEUMATOID ARTHRITIS
     Dosage: 11 MG, DAILY
     Route: 048
     Dates: start: 202006

REACTIONS (10)
  - Stress [Unknown]
  - Arthralgia [Not Recovered/Not Resolved]
  - Asthma [Unknown]
  - Pain [Recovering/Resolving]
  - Product dose omission issue [Unknown]
  - Headache [Recovered/Resolved]
  - Chronic obstructive pulmonary disease [Unknown]
  - Exostosis [Unknown]
  - Condition aggravated [Recovering/Resolving]
  - Limb mass [Unknown]

NARRATIVE: CASE EVENT DATE: 2020
